FAERS Safety Report 9478667 (Version 2)
Quarter: 2013Q4

REPORT INFORMATION
  Report Type: Spontaneous
  Country: IT (occurrence: IT)
  Receive Date: 20130827
  Receipt Date: 20131008
  Transmission Date: 20140711
  Serious: Yes (Hospitalization)
  Sender: FDA-Public Use
  Company Number: IT-TEVA-427341ISR

PATIENT
  Age: 42 Year
  Sex: Female

DRUGS (2)
  1. LEVOFLOXACINA [Suspect]
     Indication: BRONCHITIS
     Dosage: 500 MILLIGRAM DAILY;
     Route: 048
     Dates: start: 20130712, end: 20130713
  2. PARACETAMOLO 500 MG [Concomitant]
     Indication: PYREXIA

REACTIONS (7)
  - Asthenia [Recovered/Resolved]
  - Loss of consciousness [Recovered/Resolved]
  - Headache [Recovered/Resolved]
  - Disturbance in attention [Recovered/Resolved]
  - Irritability [Recovered/Resolved]
  - Hallucination [Recovered/Resolved]
  - Hypoacusis [Recovered/Resolved]
